FAERS Safety Report 12949870 (Version 1)
Quarter: 2016Q4

REPORT INFORMATION
  Report Type: Spontaneous
  Country: US (occurrence: US)
  Receive Date: 20161116
  Receipt Date: 20161116
  Transmission Date: 20170207
  Serious: Yes (Hospitalization)
  Sender: FDA-Public Use
  Company Number: None

PATIENT
  Age: 14 Year
  Sex: Female
  Weight: 53.3 kg

DRUGS (3)
  1. CYCLOPHOSPHAMIDE. [Suspect]
     Active Substance: CYCLOPHOSPHAMIDE
     Dates: end: 20161104
  2. METHOTREXATE. [Suspect]
     Active Substance: METHOTREXATE
     Dates: end: 20161107
  3. ETOPOSIDE (VP-16) [Suspect]
     Active Substance: ETOPOSIDE
     Dates: end: 20161104

REACTIONS (9)
  - Blister rupture [None]
  - Pain [None]
  - Erythema [None]
  - Cellulitis [None]
  - Soft tissue disorder [None]
  - Thermal burn [None]
  - Swelling [None]
  - Ulcer [None]
  - Induration [None]

NARRATIVE: CASE EVENT DATE: 20161110
